FAERS Safety Report 4854347-5 (Version None)
Quarter: 2005Q4

REPORT INFORMATION
  Report Type: 
  Country: None (occurrence: None)
  Receive Date: 20051214
  Receipt Date: 20051214
  Transmission Date: 20060501
  Serious: No
  Sender: FDA-Public Use
  Company Number: None

PATIENT
  Age: 64 Year
  Weight: 101.8 kg

DRUGS (1)
  1. EZETIMBE 5 MG [Suspect]
     Indication: HYPERLIPIDAEMIA
     Dosage: 5 MG DAILY PO
     Route: 048
     Dates: start: 20050824, end: 20050914

REACTIONS (1)
  - NAUSEA [None]
